FAERS Safety Report 15150499 (Version 1)
Quarter: 2018Q3

REPORT INFORMATION
  Report Type: Spontaneous
  Country: DE (occurrence: DE)
  Receive Date: 20180716
  Receipt Date: 20180716
  Transmission Date: 20181010
  Serious: Yes (Hospitalization)
  Sender: FDA-Public Use
  Company Number: DE-MYLANLABS-2018M1051523

PATIENT
  Age: 7 Decade
  Sex: Male

DRUGS (5)
  1. FLUOROURACIL. [Suspect]
     Active Substance: FLUOROURACIL
     Indication: OROPHARYNGEAL CANCER
     Dosage: RECEIVED TOTAL OF SIX CYCLES IN 2011 AND 2013 WITH CETUXIMAB AND CISPLATIN
     Route: 065
     Dates: start: 2011
  2. CETUXIMAB. [Suspect]
     Active Substance: CETUXIMAB
     Indication: OROPHARYNGEAL CANCER
     Dosage: RECEIVED TOTAL OF SIX CYCLES IN 2011 AND 2013 WITH CISPLATIN AND CETUXIMAB
     Route: 065
     Dates: start: 2011
  3. CISPLATIN. [Suspect]
     Active Substance: CISPLATIN
     Indication: OROPHARYNGEAL CANCER
     Dosage: RECEIVED TOTAL OF SIX CYCLES IN 2011 AND 2013 WITH FLUOROURACIL AND CETUXIMAB
     Route: 065
     Dates: start: 2011
  4. CETUXIMAB. [Suspect]
     Active Substance: CETUXIMAB
     Dosage: RECEIVED FOUR COURSES WITH CISPLATIN FROM SEPTEMBER 2015 ON DAYS 1, 8 AND 15 OF THE CYCLE
     Route: 065
     Dates: end: 201511
  5. CISPLATIN. [Suspect]
     Active Substance: CISPLATIN
     Dosage: RECEIVED FOUR COURSES WITH CETUXIMAB FROM SEPTEMBER 2015
     Route: 065
     Dates: end: 201511

REACTIONS (4)
  - Paraspinal abscess [Recovered/Resolved]
  - Staphylococcal infection [Recovered/Resolved]
  - Pneumonia [Unknown]
  - Chest pain [Recovered/Resolved]
